FAERS Safety Report 8037754-1 (Version None)
Quarter: 2012Q1

REPORT INFORMATION
  Report Type: 
  Country: None (occurrence: None)
  Receive Date: 20120111
  Receipt Date: 20120103
  Transmission Date: 20120608
  Serious: Yes (Other)
  Sender: FDA-Public Use
  Company Number: IE-ABBOTT-11P-229-0875163-00

PATIENT
  Sex: Male

DRUGS (9)
  1. MERCAPTOPURINE [Concomitant]
     Indication: PRODUCT USED FOR UNKNOWN INDICATION
     Dates: start: 20090129
  2. SEPTRIN PAEDIATRIC [Concomitant]
     Indication: PRODUCT USED FOR UNKNOWN INDICATION
     Dates: start: 20090202
  3. METHOTREXATE [Concomitant]
     Indication: PRODUCT USED FOR UNKNOWN INDICATION
     Dates: start: 20090210
  4. PREDNISOLONE [Concomitant]
     Indication: PRODUCT USED FOR UNKNOWN INDICATION
     Dates: start: 20100921
  5. VALPROATE SODIUM [Concomitant]
     Indication: PRODUCT USED FOR UNKNOWN INDICATION
  6. VALPROIC ACID [Suspect]
     Dosage: 500MG;PROLONGED-RELEASE; TWICE A DAY
     Route: 048
     Dates: start: 20110504
  7. LAMOTRIGINE [Concomitant]
     Indication: PRODUCT USED FOR UNKNOWN INDICATION
     Dates: start: 20101214
  8. CORTICOSTEROID NOS [Concomitant]
     Indication: PRODUCT USED FOR UNKNOWN INDICATION
  9. VALPROIC ACID [Suspect]
     Indication: EPILEPSY
     Dosage: 1000MG DAILY, PROLONGED-RELEASE
     Route: 048

REACTIONS (4)
  - PRODUCT QUALITY ISSUE [None]
  - CONVULSION [None]
  - EPILEPSY [None]
  - DRUG INEFFECTIVE [None]
